FAERS Safety Report 15374262 (Version 1)
Quarter: 2018Q3

REPORT INFORMATION
  Report Type: Spontaneous
  Country: US (occurrence: US)
  Receive Date: 20180905
  Receipt Date: 20180905
  Transmission Date: 20181010
  Serious: Yes (Hospitalization)
  Sender: FDA-Public Use
  Company Number: None

PATIENT
  Age: 72 Year
  Sex: Female
  Weight: 59 kg

DRUGS (2)
  1. NIVOLUMAB [Suspect]
     Active Substance: NIVOLUMAB
     Indication: THYROID CANCER
     Route: 042
     Dates: start: 20180108
  2. IPILIMUMAB [Suspect]
     Active Substance: IPILIMUMAB
     Indication: THYROID CANCER
     Dosage: OTHER FREQUENCY:Q6W;?
     Route: 042
     Dates: start: 20180125

REACTIONS (8)
  - Pyrexia [None]
  - Decreased appetite [None]
  - Pneumonia [None]
  - Dehydration [None]
  - Fatigue [None]
  - Vomiting [None]
  - Haemoptysis [None]
  - Nausea [None]

NARRATIVE: CASE EVENT DATE: 20180903
